FAERS Safety Report 7094013-1 (Version None)
Quarter: 2010Q4

REPORT INFORMATION
  Report Type: 
  Country: None (occurrence: None)
  Receive Date: 20101110
  Receipt Date: 20101102
  Transmission Date: 20110411
  Serious: Yes (Other)
  Sender: FDA-Public Use
  Company Number: DE-ROCHE-739140

PATIENT
  Age: 51 Year
  Sex: Female

DRUGS (1)
  1. AVASTIN [Suspect]
     Dosage: LAST HALF YEAR GIVEN AS MONOTHERAPY
     Route: 065
     Dates: start: 20091101

REACTIONS (2)
  - ASCITES [None]
  - TRANSAMINASES INCREASED [None]
